FAERS Safety Report 13646666 (Version 1)
Quarter: 2017Q2

REPORT INFORMATION
  Report Type: Spontaneous
  Country: US (occurrence: US)
  Receive Date: 20170613
  Receipt Date: 20170613
  Transmission Date: 20170830
  Serious: No
  Sender: FDA-Public Use
  Company Number: US-PFIZER INC-2017256501

PATIENT
  Age: 50 Year
  Sex: Female
  Weight: 46.71 kg

DRUGS (1)
  1. DIFLUCAN [Suspect]
     Active Substance: FLUCONAZOLE
     Dosage: UNK

REACTIONS (1)
  - Palpitations [Unknown]
